FAERS Safety Report 4823988-3 (Version None)
Quarter: 2005Q4

REPORT INFORMATION
  Report Type: 
  Country: None (occurrence: None)
  Receive Date: 20051109
  Receipt Date: 20051102
  Transmission Date: 20060501
  Serious: Yes (Other)
  Sender: FDA-Public Use
  Company Number: FR-JNJFOC-20051004331

PATIENT
  Age: 71 Year
  Sex: Female
  Weight: 96 kg

DRUGS (14)
  1. REMICADE [Suspect]
     Route: 042
  2. REMICADE [Suspect]
     Route: 042
  3. REMICADE [Suspect]
     Route: 042
  4. REMICADE [Suspect]
     Route: 042
  5. REMICADE [Suspect]
     Indication: RHEUMATOID ARTHRITIS
     Route: 042
  6. METHOTREXATE [Concomitant]
     Indication: RHEUMATOID ARTHRITIS
     Route: 048
  7. SPECIAFOLDINE [Concomitant]
     Indication: RHEUMATOID ARTHRITIS
     Route: 048
  8. CORTANCYL [Concomitant]
     Indication: RHEUMATOID ARTHRITIS
     Route: 048
  9. DOLIPRANE [Concomitant]
     Indication: RHEUMATOID ARTHRITIS
     Route: 048
  10. KARDEGIC 75 [Concomitant]
     Route: 048
  11. LOPRESSOR [Concomitant]
  12. LEVOTHYROX [Concomitant]
  13. TAREG [Concomitant]
  14. FRACTAL [Concomitant]
     Dosage: 1 QD

REACTIONS (1)
  - BREAST CANCER [None]
